FAERS Safety Report 14040796 (Version 1)
Quarter: 2017Q4

REPORT INFORMATION
  Report Type: Report from Study
  Country: BR (occurrence: BR)
  Receive Date: 20171004
  Receipt Date: 20171004
  Transmission Date: 20180321
  Serious: Yes (Other)
  Sender: FDA-Public Use
  Company Number: PHHY2017BR143751

PATIENT
  Sex: Male
  Weight: 80 kg

DRUGS (1)
  1. RITALIN LA [Suspect]
     Active Substance: METHYLPHENIDATE HYDROCHLORIDE
     Indication: SOMNOLENCE
     Dosage: 2 DF (20 MG), QD (WITH WATER)
     Route: 048

REACTIONS (5)
  - Visual impairment [Unknown]
  - Retinal injury [Unknown]
  - Glaucoma [Unknown]
  - Foreign body in eye [Unknown]
  - Product use in unapproved indication [Unknown]
